FAERS Safety Report 8896345 (Version 1)
Quarter: 2012Q4

REPORT INFORMATION
  Report Type: Spontaneous
  Country: US (occurrence: None)
  Receive Date: 20121102
  Receipt Date: 20121102
  Transmission Date: 20130627
  Serious: Yes (Hospitalization)
  Sender: FDA-Public Use
  Company Number: USA/USA/12/0026329

PATIENT
  Age: 16 Year
  Sex: Female

DRUGS (1)
  1. IBUPROFEN [Suspect]
     Indication: DRUG USE FOR UNKNOWN INDICATION

REACTIONS (8)
  - Suicide attempt [None]
  - Intentional overdose [None]
  - Metabolic acidosis [None]
  - Hypotension [None]
  - Vomiting [None]
  - Electrocardiogram QT prolonged [None]
  - Loss of consciousness [None]
  - Cardiotoxicity [None]
